FAERS Safety Report 6555275-X (Version None)
Quarter: 2010Q1

REPORT INFORMATION
  Report Type: 
  Country: None (occurrence: None)
  Receive Date: 20100128
  Receipt Date: 20090226
  Transmission Date: 20100710
  Serious: No
  Sender: FDA-Public Use
  Company Number: A0771171A

PATIENT
  Sex: Female

DRUGS (2)
  1. BUPROPION HYDROCHLORIDE [Suspect]
     Indication: DRUG USE FOR UNKNOWN INDICATION
  2. WELLBUTRIN XL [Concomitant]

REACTIONS (1)
  - UNEVALUABLE EVENT [None]
